FAERS Safety Report 5888667-2 (Version None)
Quarter: 2008Q3

REPORT INFORMATION
  Report Type: 
  Country: None (occurrence: None)
  Receive Date: 20080916
  Receipt Date: 20080903
  Transmission Date: 20090109
  Serious: Yes (Death)
  Sender: FDA-Public Use
  Company Number: 2008VX001824

PATIENT
  Age: 18 Year
  Sex: Male

DRUGS (4)
  1. FLUCYTOSINE (FLUCYTOSINE) [Suspect]
     Indication: BRONCHOPULMONARY ASPERGILLOSIS
     Dates: start: 20030101, end: 20030101
  2. FLUCYTOSINE (FLUCYTOSINE) [Suspect]
     Indication: LUNG INFILTRATION
     Dates: start: 20030101, end: 20030101
  3. HORSE ANTILYMPHOCYTE [Concomitant]
  4. GLOBULIN [Concomitant]

REACTIONS (4)
  - BRAIN ABSCESS [None]
  - BRONCHOPULMONARY ASPERGILLOSIS [None]
  - NEUTROPHIL COUNT DECREASED [None]
  - PLEURAL EFFUSION [None]
